FAERS Safety Report 5562969-1 (Version None)
Quarter: 2007Q4

REPORT INFORMATION
  Report Type: 
  Country: None (occurrence: None)
  Receive Date: 20071217
  Receipt Date: 20071207
  Transmission Date: 20080405
  Serious: Yes (Other)
  Sender: FDA-Public Use
  Company Number: PHBS2007TR19892

PATIENT
  Age: 46 Year
  Sex: Male
  Weight: 84 kg

DRUGS (2)
  1. DIOVAN [Suspect]
     Indication: HYPERTENSION
     Dosage: 80 MG, QD
     Route: 048
     Dates: start: 20051101, end: 20070401
  2. DIOVAN HCT [Suspect]
     Indication: HYPERTENSION
     Dates: start: 20070401, end: 20070912

REACTIONS (2)
  - ALVEOLITIS ALLERGIC [None]
  - PULMONARY FIBROSIS [None]
